FAERS Safety Report 12513300 (Version 2)
Quarter: 2016Q3

REPORT INFORMATION
  Report Type: Spontaneous
  Country: US (occurrence: US)
  Receive Date: 20160630
  Receipt Date: 20160912
  Transmission Date: 20161109
  Serious: Yes (Hospitalization, Other)
  Sender: FDA-Public Use
  Company Number: US-JNJFOC-20160525727

PATIENT
  Age: 42 Year
  Sex: Male
  Weight: 168.2 kg

DRUGS (1)
  1. XARELTO [Suspect]
     Active Substance: RIVAROXABAN
     Indication: DEEP VEIN THROMBOSIS
     Route: 048
     Dates: start: 20130201, end: 20150719

REACTIONS (4)
  - Gastrointestinal haemorrhage [Recovering/Resolving]
  - Melaena [Unknown]
  - Haemoptysis [Unknown]
  - Testicular haemorrhage [Unknown]

NARRATIVE: CASE EVENT DATE: 20150326
